FAERS Safety Report 10393697 (Version 2)
Quarter: 2014Q3

REPORT INFORMATION
  Report Type: Spontaneous
  Country: GB (occurrence: None)
  Receive Date: 20140815
  Receipt Date: 20140829
  Transmission Date: 20150326
  Serious: Yes (Other)
  Sender: FDA-Public Use
  Company Number: AUR-APL-2014-08589

PATIENT
  Age: 53 Year
  Sex: Male
  Weight: 133 kg

DRUGS (3)
  1. FORXIGA [Suspect]
     Active Substance: DAPAGLIFLOZIN
     Indication: TYPE 2 DIABETES MELLITUS
     Route: 048
     Dates: start: 20130828
  2. RAMIPRIL. [Suspect]
     Active Substance: RAMIPRIL
     Indication: MICROALBUMINURIA
     Route: 048
     Dates: start: 20140310
  3. RAMIPRIL. [Suspect]
     Active Substance: RAMIPRIL
     Indication: MICROALBUMINURIA
     Route: 048

REACTIONS (5)
  - Blood pressure decreased [None]
  - Loss of consciousness [None]
  - Microalbuminuria [None]
  - Road traffic accident [None]
  - Off label use [None]

NARRATIVE: CASE EVENT DATE: 20140219
